FAERS Safety Report 9707630 (Version 1)
Quarter: 2013Q4

REPORT INFORMATION
  Report Type: Spontaneous
  Country: US (occurrence: None)
  Receive Date: 20131122
  Receipt Date: 20131122
  Transmission Date: 20140711
  Serious: No
  Sender: FDA-Public Use
  Company Number: None

PATIENT
  Age: 55 Year
  Sex: Female
  Weight: 54.43 kg

DRUGS (1)
  1. CERAVE SUNSCREEN BROAD SPECTRUM SPF 50 BODY [Suspect]
     Route: 061
     Dates: start: 20131120, end: 20131120

REACTIONS (2)
  - Urticaria [None]
  - Rash pruritic [None]
